FAERS Safety Report 15735647 (Version 5)
Quarter: 2019Q2

REPORT INFORMATION
  Report Type: Spontaneous
  Country: US (occurrence: US)
  Receive Date: 20181218
  Receipt Date: 20190430
  Transmission Date: 20190711
  Serious: Yes (Hospitalization, Other)
  Sender: FDA-Public Use
  Company Number: US-NEUROCRINE BIOSCIENCES INC.-2018NBI03495

PATIENT
  Age: 77 Year
  Sex: Female

DRUGS (25)
  1. TEMAZEPAM. [Concomitant]
     Active Substance: TEMAZEPAM
     Dosage: BEDTIME
  2. POTASSIUM [Concomitant]
     Active Substance: POTASSIUM
     Dosage: 40MG IN THE MORNING AND 40 MG AT NOON
  3. FLORASTOR [Concomitant]
     Active Substance: SACCHAROMYCES CEREVISIAE
  4. TEMAZEPAM. [Concomitant]
     Active Substance: TEMAZEPAM
     Indication: INSOMNIA
     Route: 048
  5. ACETAMINOPHEN AND CODEINE [Concomitant]
     Active Substance: ACETAMINOPHEN\CODEINE PHOSPHATE
     Indication: PAIN
     Dosage: 300-30 MG
  6. LITHIUM. [Concomitant]
     Active Substance: LITHIUM
     Indication: DEPRESSION
     Dosage: EVENING
  7. ADVAIR HFA [Concomitant]
     Active Substance: FLUTICASONE PROPIONATE\SALMETEROL XINAFOATE
     Dosage: 250/50?MORNING AND EVENING
  8. ASPIRIN. [Concomitant]
     Active Substance: ASPIRIN
     Dosage: EVENING
  9. ATORVASTATIN [Concomitant]
     Active Substance: ATORVASTATIN
     Dosage: EVENING
  10. MELATONIN [Concomitant]
     Active Substance: MELATONIN
  11. OXYGEN. [Concomitant]
     Active Substance: OXYGEN
     Dosage: 3 LPM
  12. PROMETHAZINE [Concomitant]
     Active Substance: PROMETHAZINE\PROMETHAZINE HYDROCHLORIDE
     Dosage: RARELY
  13. INGREZZA [Suspect]
     Active Substance: VALBENAZINE
     Indication: TARDIVE DYSKINESIA
     Route: 048
     Dates: start: 20181002, end: 20181119
  14. BUPROPION. [Concomitant]
     Active Substance: BUPROPION
     Indication: DEPRESSION
     Route: 048
  15. NORTRIPTYLINE [Concomitant]
     Active Substance: NORTRIPTYLINE
     Indication: DEPRESSION
     Route: 048
  16. ALBUTEROL. [Concomitant]
     Active Substance: ALBUTEROL
  17. ALPRAZOLAM. [Concomitant]
     Active Substance: ALPRAZOLAM
     Indication: ANXIETY
  18. FUROSEMIDE. [Concomitant]
     Active Substance: FUROSEMIDE
     Dosage: 40MG IN THE MORNING AND 40 MG AT NOON
  19. METOPROLOL. [Concomitant]
     Active Substance: METOPROLOL
  20. PANTOPRAZOLE [Concomitant]
     Active Substance: PANTOPRAZOLE
     Dosage: 40MG IN THE MORNING AND 40 MG IN THE EVENING
  21. FERROUS SULFATE. [Concomitant]
     Active Substance: FERROUS SULFATE
     Dosage: MORNING AND EVENING
  22. MAG-OX [Concomitant]
     Active Substance: MAGNESIUM OXIDE
     Dosage: MORNING AND EVENING
  23. SPIRIVA [Concomitant]
     Active Substance: TIOTROPIUM BROMIDE MONOHYDRATE
     Dosage: IN THE MORNING
  24. SUCRALFATE. [Concomitant]
     Active Substance: SUCRALFATE
     Dosage: MORNING, EVENING AND AT BEDTIME
  25. AMOXILCILLIN [Concomitant]
     Dosage: 1 HOUR BEFORE DENTAL VISIT

REACTIONS (12)
  - Fluid retention [Recovered/Resolved]
  - Somnolence [Recovered/Resolved]
  - Decreased appetite [Recovered/Resolved]
  - Fall [Recovered/Resolved]
  - Asthenia [Recovered/Resolved]
  - Urinary tract infection [Recovered/Resolved]
  - Dizziness [Recovered/Resolved]
  - Gait inability [Recovered/Resolved]
  - Balance disorder [Recovered/Resolved]
  - Delirium [Recovered/Resolved]
  - Loss of consciousness [Recovered/Resolved]
  - Urinary retention [Recovered/Resolved]

NARRATIVE: CASE EVENT DATE: 2018
